FAERS Safety Report 7657441-9 (Version None)
Quarter: 2011Q3

REPORT INFORMATION
  Report Type: 
  Country: None (occurrence: None)
  Receive Date: 20110804
  Receipt Date: 20110801
  Transmission Date: 20111222
  Serious: Yes (Other)
  Sender: FDA-Public Use
  Company Number: US-MYLANLABS-2011S1015842

PATIENT
  Age: 59 Year
  Sex: Female

DRUGS (4)
  1. DUONEB [Concomitant]
     Indication: ASTHMA
     Route: 055
  2. LEVOTHYROXINE SODIUM [Suspect]
     Indication: THYROIDECTOMY
     Route: 048
     Dates: start: 20110728, end: 20110731
  3. CALCIUM CARBONATE [Concomitant]
     Indication: GASTROOESOPHAGEAL REFLUX DISEASE
     Route: 048
  4. ZYRTEC [Concomitant]
     Indication: MULTIPLE ALLERGIES
     Route: 048

REACTIONS (2)
  - REACTION TO DRUG EXCIPIENTS [None]
  - ANAPHYLACTIC REACTION [None]
